FAERS Safety Report 12679360 (Version 1)
Quarter: 2016Q3

REPORT INFORMATION
  Report Type: Spontaneous
  Country: US (occurrence: None)
  Receive Date: 20160823
  Receipt Date: 20160823
  Transmission Date: 20161109
  Serious: Yes (Hospitalization)
  Sender: FDA-Public Use
  Company Number: None

PATIENT
  Age: 91 Year
  Sex: Male
  Weight: 61.2 kg

DRUGS (2)
  1. CLOPIDOGREL [Suspect]
     Active Substance: CLOPIDOGREL BISULFATE
     Indication: CEREBROVASCULAR ACCIDENT PROPHYLAXIS
     Route: 048
     Dates: start: 20101215, end: 20160526
  2. ASPIRIN. [Suspect]
     Active Substance: ASPIRIN
     Indication: CEREBROVASCULAR ACCIDENT PROPHYLAXIS
     Route: 048
     Dates: start: 20101215, end: 20160526

REACTIONS (8)
  - Orthostatic hypotension [None]
  - Atrioventricular block [None]
  - Haemoglobin decreased [None]
  - Gastric haemorrhage [None]
  - Blood urea increased [None]
  - Gastrointestinal haemorrhage [None]
  - Sinus arrest [None]
  - Faeces discoloured [None]

NARRATIVE: CASE EVENT DATE: 20160526
